FAERS Safety Report 5748224-5 (Version None)
Quarter: 2008Q2

REPORT INFORMATION
  Report Type: 
  Country: None (occurrence: None)
  Receive Date: 20080523
  Receipt Date: 20080514
  Transmission Date: 20081010
  Serious: Yes (Hospitalization)
  Sender: FDA-Public Use
  Company Number: FR-PFIZER INC-2006060653

PATIENT
  Sex: Male

DRUGS (9)
  1. SU-011,248 [Suspect]
     Indication: METASTATIC RENAL CELL CARCINOMA
     Route: 048
     Dates: start: 20060419, end: 20060507
  2. SU-011,248 [Suspect]
     Route: 048
     Dates: start: 20060511, end: 20060516
  3. SU-011,248 [Suspect]
     Route: 048
  4. PERINDOPRIL ERBUMINE [Concomitant]
  5. AMLOR [Concomitant]
  6. ASPIRIN [Concomitant]
  7. TENORMIN [Concomitant]
  8. DIAMICRON [Concomitant]
  9. GLUCOPHAGE [Concomitant]

REACTIONS (4)
  - CHILLS [None]
  - COMA [None]
  - CONFUSIONAL STATE [None]
  - PYREXIA [None]
